FAERS Safety Report 7894495-9 (Version None)
Quarter: 2011Q4

REPORT INFORMATION
  Report Type: 
  Country: None (occurrence: None)
  Receive Date: 20111106
  Receipt Date: 20110816
  Transmission Date: 20120403
  Serious: No
  Sender: FDA-Public Use
  Company Number: US-AMGEN-USASP2011041749

PATIENT
  Age: 61 Year
  Sex: Female

DRUGS (1)
  1. ENBREL [Suspect]
     Indication: PSORIASIS
     Dosage: 50 MG, QWK
     Dates: start: 20110125

REACTIONS (6)
  - HEADACHE [None]
  - EXTRASYSTOLES [None]
  - WEIGHT INCREASED [None]
  - DECREASED APPETITE [None]
  - ANXIETY [None]
  - NAUSEA [None]
